FAERS Safety Report 4607958-6 (Version None)
Quarter: 2005Q1

REPORT INFORMATION
  Report Type: 
  Country: None (occurrence: None)
  Receive Date: 20050228
  Receipt Date: 20041220
  Transmission Date: 20050727
  Serious: No
  Sender: FDA-Public Use
  Company Number: FABR-10925

PATIENT
  Sex: Female

DRUGS (1)
  1. FABRAZYME [Suspect]
     Indication: FABRY'S DISEASE

REACTIONS (2)
  - ACCIDENTAL EXPOSURE [None]
  - CORNEAL ABRASION [None]
